FAERS Safety Report 9306038 (Version 3)
Quarter: 2013Q3

REPORT INFORMATION
  Report Type: Spontaneous
  Country: US (occurrence: US)
  Receive Date: 20130523
  Receipt Date: 20130722
  Transmission Date: 20140515
  Serious: No
  Sender: FDA-Public Use
  Company Number: US-PFIZER INC-2013156901

PATIENT
  Age: 70 Year
  Sex: Male
  Weight: 67.12 kg

DRUGS (5)
  1. NICOTROL INHALER [Suspect]
     Indication: SMOKING CESSATION THERAPY
     Dosage: 4 MG, UNK (10 CARTRIDGES/DAY)
     Dates: start: 20130514, end: 20130517
  2. NICOTROL INHALER [Suspect]
     Indication: SMOKING CESSATION THERAPY
  3. NEURONTIN [Concomitant]
     Indication: DYSAESTHESIA
     Dosage: 600 TO 800 MG DAILY
  4. ACETYLSALICYLIC ACID [Concomitant]
     Indication: CORONARY ARTERY STENOSIS
     Dosage: 81 MG, 1X/DAY
  5. PRAVASTATIN [Concomitant]
     Indication: CORONARY ARTERY STENOSIS
     Dosage: 20 MG, DAILY

REACTIONS (1)
  - Drug ineffective [Unknown]
